FAERS Safety Report 7314628-2 (Version None)
Quarter: 2011Q1

REPORT INFORMATION
  Report Type: 
  Country: None (occurrence: None)
  Receive Date: 20110225
  Receipt Date: 20101108
  Transmission Date: 20110831
  Serious: No
  Sender: FDA-Public Use
  Company Number: US-MYLANLABS-2010S1019417

PATIENT
  Age: 23 Year
  Sex: Female
  Weight: 49.9 kg

DRUGS (1)
  1. AMNESTEEM [Suspect]
     Indication: ACNE CYSTIC
     Route: 048
     Dates: start: 20100501, end: 20101018

REACTIONS (1)
  - BLOOD TRIGLYCERIDES INCREASED [None]
